FAERS Safety Report 7495329-7 (Version None)
Quarter: 2011Q2

REPORT INFORMATION
  Report Type: 
  Country: None (occurrence: None)
  Receive Date: 20110523
  Receipt Date: 20110517
  Transmission Date: 20111010
  Serious: Yes (Life-Threatening, Hospitalization)
  Sender: FDA-Public Use
  Company Number: BE-BIOGENIDEC-2011BI018211

PATIENT
  Age: 43 Year
  Sex: Female

DRUGS (2)
  1. LYRICA [Concomitant]
     Indication: NEURALGIA
     Route: 048
     Dates: start: 20101120
  2. TYSABRI [Suspect]
     Indication: RELAPSING-REMITTING MULTIPLE SCLEROSIS
     Route: 042
     Dates: start: 20101001

REACTIONS (1)
  - HEPATITIS FULMINANT [None]
